FAERS Safety Report 9947150 (Version 1)
Quarter: 2014Q1

REPORT INFORMATION
  Report Type: Report from Study
  Country: US (occurrence: US)
  Receive Date: 20140303
  Receipt Date: 20140303
  Transmission Date: 20141002
  Serious: No
  Sender: FDA-Public Use
  Company Number: US-ABBVIE-13P-163-1064427-00

PATIENT
  Age: 37 Year
  Sex: Male

DRUGS (7)
  1. HUMIRA [Suspect]
     Indication: ANKYLOSING SPONDYLITIS
     Dates: start: 201301, end: 20130218
  2. TRAMADOL [Concomitant]
     Indication: PAIN
     Dosage: 50 MG 1-2 TABS EVERY 6 HOURS AS NEEDED
  3. OMEPRAZOLE [Concomitant]
     Indication: DYSPEPSIA
     Dosage: 40 MG DAILY
  4. OMEPRAZOLE [Concomitant]
     Indication: DYSPEPSIA
  5. GLYBURIDE [Concomitant]
     Indication: TYPE 2 DIABETES MELLITUS
     Dosage: 10 MG DAILY
  6. AMLODIPINE [Concomitant]
     Indication: HYPERTENSION
     Dosage: 10 MG DAILY
  7. LISINOPRIL [Concomitant]
     Indication: HYPERTENSION
     Dosage: 20 MG DAILY

REACTIONS (3)
  - Drug dose omission [Recovering/Resolving]
  - Nasopharyngitis [Recovering/Resolving]
  - Injection site erythema [Recovered/Resolved]
